FAERS Safety Report 8835060 (Version 1)
Quarter: 2012Q4

REPORT INFORMATION
  Report Type: Spontaneous
  Country: US (occurrence: None)
  Receive Date: 20121009
  Receipt Date: 20121009
  Transmission Date: 20130627
  Serious: Yes (Hospitalization)
  Sender: FDA-Public Use
  Company Number: UTC-023719

PATIENT
  Age: 41 Year
  Sex: Female

DRUGS (3)
  1. REMODULIN [Suspect]
     Indication: PRIMARY PULMONARY HYPERTENSION
     Dosage: 50.4 ug/kg (0.035 ug/kg, 1 in 1 min), Subcutaneous
     Route: 058
     Dates: start: 20111220
  2. COUMADIN (WARFARIN SODIUM) [Concomitant]
  3. LETAIRIS (AMBRISENTAN) [Concomitant]

REACTIONS (1)
  - Infusion site infection [None]
